FAERS Safety Report 8950788 (Version 1)
Quarter: 2012Q4

REPORT INFORMATION
  Report Type: 
  Country: AU (occurrence: AT)
  Receive Date: 20121207
  Receipt Date: 20121207
  Transmission Date: 20130627
  Serious: Yes (Congenital Anomaly)
  Sender: FDA-Public Use
  Company Number: AT-009507513-1107AUT00004B1

PATIENT
  Age: 1 Day

DRUGS (6)
  1. ISENTRESS [Suspect]
     Indication: HIV INFECTION
     Route: 064
  2. COMBIVIR [Suspect]
     Route: 064
  3. RETROVIR [Suspect]
     Route: 064
  4. FUZEON [Suspect]
     Dosage: 800 mg daily
     Route: 064
  5. PREZISTA [Suspect]
     Dosage: 1200 mg daily
     Route: 064
  6. LPV [Concomitant]
     Indication: HIV INFECTION
     Route: 064

REACTIONS (2)
  - Plagiocephaly [Recovered/Resolved]
  - Foetal exposure during pregnancy [Recovered/Resolved]
